FAERS Safety Report 8422569 (Version 12)
Quarter: 2015Q2

REPORT INFORMATION
  Report Type: Report from Study
  Country: DE (occurrence: DE)
  Receive Date: 20120223
  Receipt Date: 20150518
  Transmission Date: 20150821
  Serious: Yes (Death, Hospitalization)
  Sender: FDA-Public Use
  Company Number: DE-ROCHE-1040118

PATIENT
  Age: 61 Year
  Sex: Male
  Weight: 113 kg

DRUGS (7)
  1. ENOXAPARIN [Suspect]
     Active Substance: ENOXAPARIN
     Indication: PRODUCT USED FOR UNKNOWN INDICATION
     Route: 065
     Dates: start: 20120208, end: 20120208
  2. HYDROMORPHONE [Concomitant]
     Active Substance: HYDROMORPHONE
     Route: 065
     Dates: start: 20120207
  3. GABAPENTIN. [Suspect]
     Active Substance: GABAPENTIN
     Indication: PRODUCT USED FOR UNKNOWN INDICATION
     Dosage: DOSE WAS INCREASED EVERY DAY ABOUT 100 MG
     Route: 065
     Dates: start: 20120207, end: 20120207
  4. VEMURAFENIB [Suspect]
     Active Substance: VEMURAFENIB
     Indication: METASTATIC MALIGNANT MELANOMA
     Route: 048
     Dates: start: 20120206, end: 20120209
  5. ENOXAPARIN [Suspect]
     Active Substance: ENOXAPARIN
     Route: 065
     Dates: start: 20120209, end: 20120209
  6. GABAPENTIN. [Suspect]
     Active Substance: GABAPENTIN
     Route: 065
     Dates: start: 20120208, end: 20120208
  7. GABAPENTIN. [Suspect]
     Active Substance: GABAPENTIN
     Route: 065
     Dates: start: 20120208, end: 20120208

REACTIONS (2)
  - Disseminated intravascular coagulation [Fatal]
  - Thrombocytopenia [Not Recovered/Not Resolved]

NARRATIVE: CASE EVENT DATE: 20120209
